FAERS Safety Report 9779328 (Version 2)
Quarter: 2014Q1

REPORT INFORMATION
  Report Type: Spontaneous
  Country: FR (occurrence: FR)
  Receive Date: 20131223
  Receipt Date: 20140108
  Transmission Date: 20141002
  Serious: Yes (Death)
  Sender: FDA-Public Use
  Company Number: FR-BAXTER-2013BAX050699

PATIENT
  Age: 73 Year
  Sex: Male

DRUGS (21)
  1. ENDOXAN 2000 MG, LYOPHILISAT POUR SOLUTION INJECTABLE [Suspect]
     Indication: T-CELL LYMPHOMA
     Route: 042
     Dates: start: 20131030, end: 20131030
  2. GEMZAR [Suspect]
     Indication: T-CELL LYMPHOMA
     Dosage: 5 CYCLES TOTAL
     Route: 042
     Dates: start: 20130819, end: 20131030
  3. ADRIBLASTINE [Suspect]
     Indication: T-CELL LYMPHOMA
     Dosage: 1ST CYCLE
     Route: 042
     Dates: start: 20131030, end: 20131030
  4. VINCRISTINE [Suspect]
     Indication: T-CELL LYMPHOMA
     Route: 042
     Dates: start: 20131030, end: 20131030
  5. OXALIPLATIN [Suspect]
     Indication: T-CELL LYMPHOMA
     Dosage: 5 CYCLES TOTAL
     Route: 042
     Dates: start: 20130819, end: 20131030
  6. SOLUMEDROL [Suspect]
     Indication: T-CELL LYMPHOMA
     Route: 042
     Dates: start: 20131030, end: 20131103
  7. KARDEGIC [Concomitant]
     Indication: PRODUCT USED FOR UNKNOWN INDICATION
     Route: 065
     Dates: start: 201305
  8. TAZOCILLINE [Concomitant]
     Indication: INTERSTITIAL LUNG DISEASE
     Route: 065
     Dates: end: 20130606
  9. TAVANIC [Concomitant]
     Indication: INTERSTITIAL LUNG DISEASE
     Route: 065
     Dates: end: 20130606
  10. TRIFLUCAN [Concomitant]
     Indication: NEUROPATHY PERIPHERAL
     Route: 065
  11. TRIFLUCAN [Concomitant]
     Indication: LUNG DISORDER
  12. TRIFLUCAN [Concomitant]
     Indication: COLD AGGLUTININS POSITIVE
  13. SPIRAMYCIN [Concomitant]
     Indication: NEUROPATHY PERIPHERAL
     Route: 065
  14. SPIRAMYCIN [Concomitant]
     Indication: LUNG DISORDER
  15. SPIRAMYCIN [Concomitant]
     Indication: COLD AGGLUTININS POSITIVE
  16. FUROSEMIDE [Concomitant]
     Indication: PRODUCT USED FOR UNKNOWN INDICATION
     Route: 065
  17. EUPANTOL [Concomitant]
     Indication: PRODUCT USED FOR UNKNOWN INDICATION
     Route: 065
  18. RAMIPRIL [Concomitant]
     Route: 065
  19. PROCORALAN [Concomitant]
     Indication: PRODUCT USED FOR UNKNOWN INDICATION
     Route: 065
  20. SOLUPRED [Concomitant]
     Indication: PRODUCT USED FOR UNKNOWN INDICATION
     Route: 065
  21. STILNOX [Concomitant]
     Indication: PRODUCT USED FOR UNKNOWN INDICATION
     Dosage: 1 TABLET
     Route: 065

REACTIONS (3)
  - Interstitial lung disease [Fatal]
  - Arrhythmia [Fatal]
  - Septic shock [Fatal]
